FAERS Safety Report 7539881-1 (Version None)
Quarter: 2011Q2

REPORT INFORMATION
  Report Type: 
  Country: None (occurrence: None)
  Receive Date: 20110610
  Receipt Date: 20110608
  Transmission Date: 20111010
  Serious: Yes (Other)
  Sender: FDA-Public Use
  Company Number: US-PFIZER INC-2011126240

PATIENT
  Sex: Female
  Weight: 69.388 kg

DRUGS (1)
  1. SPIRONOLACTONE [Suspect]
     Indication: METABOLIC SYNDROME
     Dosage: 50 MG, 2X/DAY
     Dates: end: 20110101

REACTIONS (1)
  - BREAST CANCER [None]
